FAERS Safety Report 9612977 (Version 3)
Quarter: 2013Q4

REPORT INFORMATION
  Report Type: Spontaneous
  Country: BR (occurrence: BR)
  Receive Date: 20131010
  Receipt Date: 20131212
  Transmission Date: 20140711
  Serious: Yes (Hospitalization, Other)
  Sender: FDA-Public Use
  Company Number: BR-ASTRAZENECA-2013SE73797

PATIENT
  Age: 61 Year
  Sex: Male
  Weight: 87 kg

DRUGS (7)
  1. ATACAND [Suspect]
     Indication: HYPERTENSION
     Route: 048
     Dates: end: 2013
  2. ATACAND [Suspect]
     Indication: HYPERTENSION
     Route: 048
     Dates: start: 2013
  3. BRILINTA [Suspect]
     Route: 048
     Dates: start: 201308
  4. ROSUVASTATIN [Suspect]
     Route: 048
     Dates: start: 201308
  5. ATENOLOL [Suspect]
     Route: 065
     Dates: start: 201308
  6. ASPIRIN [Concomitant]
     Route: 065
     Dates: start: 201308
  7. PANTOPRAZOLE [Concomitant]

REACTIONS (6)
  - Coronary artery occlusion [Unknown]
  - Myocardial ischaemia [Unknown]
  - Nervousness [Unknown]
  - Blood pressure increased [Recovered/Resolved]
  - Hypotension [Recovered/Resolved]
  - Drug ineffective [Unknown]
